FAERS Safety Report 7752945-2 (Version None)
Quarter: 2011Q3

REPORT INFORMATION
  Report Type: 
  Country: None (occurrence: None)
  Receive Date: 20110915
  Receipt Date: 20110902
  Transmission Date: 20111222
  Serious: Yes (Hospitalization)
  Sender: FDA-Public Use
  Company Number: JP-CELGENEUS-TAJPN-10-0691

PATIENT
  Sex: Female
  Weight: 70 kg

DRUGS (16)
  1. MAXIPIME [Concomitant]
     Route: 065
     Dates: end: 20101113
  2. NEUTROGIN [Concomitant]
     Route: 065
     Dates: end: 20101107
  3. METOCLOPRAMIDE [Concomitant]
     Route: 048
     Dates: start: 20101029, end: 20110107
  4. ABRAXANE [Suspect]
     Dosage: 316-387MG
     Route: 065
     Dates: start: 20101119, end: 20110114
  5. MS CONTIN [Concomitant]
     Route: 048
     Dates: start: 20101029, end: 20110107
  6. TEPRENONE [Concomitant]
     Route: 048
     Dates: start: 20101029, end: 20110107
  7. ABRAXANE [Suspect]
     Dosage: 380 MILLIGRAM
     Route: 065
     Dates: start: 20101210
  8. FUDOSTEINE [Concomitant]
     Route: 048
     Dates: start: 20101029, end: 20110107
  9. EMEND [Concomitant]
     Route: 048
     Dates: start: 20101029, end: 20101031
  10. WHOLE BLOOD [Concomitant]
     Route: 041
     Dates: start: 20101226, end: 20101226
  11. ABRAXANE [Suspect]
     Indication: BREAST CANCER METASTATIC
     Dosage: 390 MILLIGRAM
     Route: 065
     Dates: start: 20101029, end: 20101029
  12. LOXOPROFEN [Concomitant]
     Route: 048
     Dates: start: 20101029, end: 20110107
  13. ABRAXANE [Suspect]
     Dosage: 316 MILLIGRAM
     Route: 065
     Dates: start: 20110114
  14. RABEPRAZOLE SODIUM [Concomitant]
     Route: 048
     Dates: start: 20101029, end: 20110107
  15. FUROSEMIDE [Concomitant]
     Route: 048
     Dates: start: 20101029, end: 20110107
  16. AMOBAN [Concomitant]
     Route: 048
     Dates: start: 20101229, end: 20101230

REACTIONS (8)
  - NEUTROPHIL COUNT DECREASED [None]
  - MALAISE [None]
  - GAMMA-GLUTAMYLTRANSFERASE INCREASED [None]
  - C-REACTIVE PROTEIN INCREASED [None]
  - WHITE BLOOD CELL COUNT DECREASED [None]
  - BLOOD ALKALINE PHOSPHATASE INCREASED [None]
  - PLEURAL EFFUSION [None]
  - NAUSEA [None]
